FAERS Safety Report 10456048 (Version 1)
Quarter: 2014Q3

REPORT INFORMATION
  Report Type: Spontaneous
  Country: US (occurrence: None)
  Receive Date: 20140915
  Receipt Date: 20140915
  Transmission Date: 20150326
  Serious: No
  Sender: FDA-Public Use
  Company Number: None

PATIENT
  Age: 50 Year
  Sex: Female

DRUGS (2)
  1. PROGRAF [Concomitant]
     Active Substance: TACROLIMUS\TACROLIMUS ANHYDROUS
  2. FORTEO [Suspect]
     Active Substance: TERIPARATIDE
     Indication: OSTEOPOROSIS
     Dosage: 20 MCG, DAILY, SQ
     Dates: start: 20140630, end: 20140824

REACTIONS (6)
  - Neck pain [None]
  - Arthralgia [None]
  - Medical device complication [None]
  - Haematochezia [None]
  - Diarrhoea [None]
  - Mobility decreased [None]

NARRATIVE: CASE EVENT DATE: 20140630
